FAERS Safety Report 21440058 (Version 1)
Quarter: 2022Q4

REPORT INFORMATION
  Report Type: Spontaneous
  Country: US (occurrence: None)
  Receive Date: 20221008
  Receipt Date: 20221008
  Transmission Date: 20230112
  Serious: Yes (Life-Threatening)
  Sender: FDA-Public Use
  Company Number: None

PATIENT
  Age: 54 Year
  Sex: Female
  Weight: 63 kg

DRUGS (13)
  1. KETAMIN [Suspect]
     Active Substance: KETAMINE
     Indication: Depression
     Dosage: OTHER QUANTITY : 1 INJECTION(S);?OTHER FREQUENCY : AS PRESCRIBED;?
     Route: 042
  2. KETAMIN [Suspect]
     Active Substance: KETAMINE
     Indication: Anxiety
  3. ESCITALOPRAN [Concomitant]
  4. TRAZODONE [Concomitant]
     Active Substance: TRAZODONE HYDROCHLORIDE
  5. CLONAZEPAM [Concomitant]
     Active Substance: CLONAZEPAM
  6. LOSARTAN [Concomitant]
     Active Substance: LOSARTAN
  7. ROSUVASTATIN [Concomitant]
     Active Substance: ROSUVASTATIN
  8. BUSPIRONE [Concomitant]
     Active Substance: BUSPIRONE HYDROCHLORIDE
  9. myzrbetriq [Concomitant]
  10. ASPIRIN [Concomitant]
     Active Substance: ASPIRIN
  11. CARVEDILOL [Concomitant]
     Active Substance: CARVEDILOL
  12. VITAMIN D3 [Concomitant]
     Active Substance: CHOLECALCIFEROL
  13. PERCOCET [Concomitant]
     Active Substance: ACETAMINOPHEN\OXYCODONE HYDROCHLORIDE

REACTIONS (6)
  - Disorientation [None]
  - Dissociation [None]
  - Panic attack [None]
  - Hallucination [None]
  - Heart rate increased [None]
  - Infusion related reaction [None]

NARRATIVE: CASE EVENT DATE: 20220620
